FAERS Safety Report 8317007-4 (Version None)
Quarter: 2012Q2

REPORT INFORMATION
  Report Type: 
  Country: None (occurrence: None)
  Receive Date: 20120425
  Receipt Date: 20120419
  Transmission Date: 20120825
  Serious: Yes (Death, Hospitalization)
  Sender: FDA-Public Use
  Company Number: 2012SP020860

PATIENT
  Age: 59 Year
  Sex: Male

DRUGS (8)
  1. BEVACIZUMAB (BEVACIZUMAB) [Suspect]
     Indication: BRAIN NEOPLASM MALIGNANT
     Dosage: 1 DF;Q3W;IV
     Route: 042
     Dates: start: 20100420, end: 20111129
  2. LEVETIRACETAM [Concomitant]
  3. CITALOPRAM HYDROBROMIDE [Concomitant]
  4. CLOBAZAM [Concomitant]
  5. OLMESARTAN MEDOXOMIL [Concomitant]
  6. TEMOZOLOMIDE [Suspect]
     Indication: BRAIN NEOPLASM MALIGNANT
     Dosage: 400 MG;QD;PO
     Route: 047
     Dates: start: 20100420
  7. LAMOTRIGINE [Concomitant]
  8. BISOPROLOL FUMARATE [Concomitant]

REACTIONS (3)
  - NEOPLASM PROGRESSION [None]
  - BRAIN NEOPLASM MALIGNANT [None]
  - LEUKOENCEPHALOPATHY [None]
